FAERS Safety Report 13854547 (Version 1)
Quarter: 2017Q3

REPORT INFORMATION
  Report Type: Spontaneous
  Country: JP (occurrence: JP)
  Receive Date: 20170809
  Receipt Date: 20170809
  Transmission Date: 20171127
  Serious: Yes (Other)
  Sender: FDA-Public Use
  Company Number: JP-BAXTER-2017BAX029785

PATIENT
  Sex: Female

DRUGS (1)
  1. ENDOXAN [Suspect]
     Active Substance: CYCLOPHOSPHAMIDE
     Indication: PRODUCT USED FOR UNKNOWN INDICATION
     Dosage: STARTED RECEIVING 5 COURSES
     Route: 048
     Dates: start: 201107

REACTIONS (4)
  - Blood disorder [Unknown]
  - Malaise [Unknown]
  - Condition aggravated [Unknown]
  - Thrombocytopenic purpura [Unknown]

NARRATIVE: CASE EVENT DATE: 2013
